FAERS Safety Report 8269559 (Version 2)
Quarter: 2012Q4

REPORT INFORMATION
  Report Type: 
  Country: US (occurrence: US)
  Receive Date: 20111130
  Receipt Date: 20120920
  Transmission Date: 20130627
  Serious: Yes (Hospitalization)
  Sender: FDA-Public Use
  Company Number: US-US-EMD SERONO, INC.-7098157

PATIENT
  Age: 44 None
  Sex: Male

DRUGS (5)
  1. REBIF [Suspect]
     Indication: MULTIPLE SCLEROSIS
     Route: 058
     Dates: start: 20110909
  2. DETROL LA [Concomitant]
     Indication: HYPERTONIC BLADDER
  3. WELLBUTRIN [Concomitant]
     Indication: DEPRESSION
  4. PRISTIQUE [Concomitant]
     Indication: DEPRESSION
  5. ALEVE [Concomitant]
     Indication: INJECTION SITE PAIN

REACTIONS (3)
  - Urinary tract infection [Recovered/Resolved]
  - Tremor [Unknown]
  - Injection site erythema [Unknown]
